FAERS Safety Report 6791281-8 (Version None)
Quarter: 2010Q2

REPORT INFORMATION
  Report Type: 
  Country: None (occurrence: None)
  Receive Date: 20100624
  Receipt Date: 20100624
  Transmission Date: 20101027
  Serious: Yes (Life-Threatening, Hospitalization)
  Sender: FDA-Public Use
  Company Number: None

PATIENT
  Age: 73 Year
  Sex: Male

DRUGS (2)
  1. CHILDREN'S ZYRTEC ALLERGY [Suspect]
     Dosage: TWICE A DAY ORALLY
     Route: 048
  2. CHILDREN'S BENADRYL ALLERGY [Suspect]

REACTIONS (15)
  - ASTHENIA [None]
  - FEELING DRUNK [None]
  - FUNGAL INFECTION [None]
  - HYPOTENSION [None]
  - NAUSEA [None]
  - OEDEMA PERIPHERAL [None]
  - PRODUCT QUALITY ISSUE [None]
  - PURPURA [None]
  - PYREXIA [None]
  - RASH ERYTHEMATOUS [None]
  - RASH GENERALISED [None]
  - SARCOIDOSIS [None]
  - SELF-MEDICATION [None]
  - WEIGHT DECREASED [None]
  - WRONG DRUG ADMINISTERED [None]
